FAERS Safety Report 9186677 (Version 1)
Quarter: 2013Q1

REPORT INFORMATION
  Report Type: Spontaneous
  Country: US (occurrence: None)
  Receive Date: 20130129
  Receipt Date: 20130129
  Transmission Date: 20140127
  Serious: No
  Sender: FDA-Public Use
  Company Number: 1100835

PATIENT
  Sex: Female

DRUGS (1)
  1. MONISTAT [Suspect]
     Indication: FUNGAL INFECTION
     Dosage: INSERTED VAGINALLY X4
     Dates: start: 20130103, end: 20130106

REACTIONS (3)
  - Nausea [None]
  - Chills [None]
  - Loss of consciousness [None]
